FAERS Safety Report 18144843 (Version 1)
Quarter: 2020Q3

REPORT INFORMATION
  Report Type: Spontaneous
  Country: AT (occurrence: AT)
  Receive Date: 20200813
  Receipt Date: 20200813
  Transmission Date: 20201103
  Serious: Yes (Hospitalization, Other)
  Sender: FDA-Public Use
  Company Number: AT-TEVA-2020-AT-1813708

PATIENT
  Age: 11 Month
  Sex: Female

DRUGS (1)
  1. COPAXONE [Suspect]
     Active Substance: GLATIRAMER ACETATE
     Indication: MULTIPLE SCLEROSIS
     Dosage: MOTHER RESTARTED AFTER PREGNANCY ON 07/2020
     Route: 064
     Dates: start: 201701, end: 201803

REACTIONS (5)
  - Viral infection [Unknown]
  - Foetal malposition [Unknown]
  - Pyrexia [Unknown]
  - Large for dates baby [Unknown]
  - Foetal exposure during pregnancy [Unknown]

NARRATIVE: CASE EVENT DATE: 201910
